FAERS Safety Report 6279523-9 (Version None)
Quarter: 2009Q3

REPORT INFORMATION
  Report Type: 
  Country: None (occurrence: None)
  Receive Date: 20090723
  Receipt Date: 20090716
  Transmission Date: 20100115
  Serious: Yes (Other)
  Sender: FDA-Public Use
  Company Number: FR-JNJFOC-20090506120

PATIENT
  Sex: Male

DRUGS (2)
  1. EPITOMAX [Suspect]
     Route: 048
  2. EPITOMAX [Suspect]
     Indication: DRUG USE FOR UNKNOWN INDICATION
     Route: 048

REACTIONS (5)
  - ALCOHOL INTOLERANCE [None]
  - CONDITION AGGRAVATED [None]
  - DELIRIUM [None]
  - DRUG DOSE OMISSION [None]
  - FEELING DRUNK [None]
